FAERS Safety Report 16217942 (Version 1)
Quarter: 2019Q2

REPORT INFORMATION
  Report Type: Report from Study
  Country: US (occurrence: US)
  Receive Date: 20190419
  Receipt Date: 20190419
  Transmission Date: 20190711
  Serious: Yes (Hospitalization, Other)
  Sender: FDA-Public Use
  Company Number: US-SA-2019SA103679

PATIENT
  Age: 60 Year
  Sex: Male

DRUGS (2)
  1. INSULIN GLULISINE [Suspect]
     Active Substance: INSULIN GLULISINE
     Indication: TYPE 2 DIABETES MELLITUS
     Dosage: 65 UNITS DIVIDED TO 3X A DAY
     Route: 065
  2. LANTUS [Concomitant]
     Active Substance: INSULIN GLARGINE
     Indication: TYPE 2 DIABETES MELLITUS
     Dosage: 55-58 UNITS, QD
     Route: 065

REACTIONS (6)
  - Cough [Unknown]
  - Blood glucose increased [Unknown]
  - Expired product administered [Unknown]
  - Renal impairment [Recovered/Resolved]
  - Product dose omission [Unknown]
  - Treatment noncompliance [Unknown]
